FAERS Safety Report 12479087 (Version 1)
Quarter: 2016Q2

REPORT INFORMATION
  Report Type: Spontaneous
  Country: IL (occurrence: IL)
  Receive Date: 20160620
  Receipt Date: 20160620
  Transmission Date: 20160815
  Serious: Yes (Life-Threatening, Hospitalization)
  Sender: FDA-Public Use
  Company Number: IL-ACCORD-041453

PATIENT
  Age: 21 Year
  Sex: Female

DRUGS (3)
  1. METAMIZOLE SODIUM [Concomitant]
     Active Substance: METAMIZOLE SODIUM
     Indication: ANALGESIC THERAPY
     Dosage: RECEIVED WITH MTX
  2. TRAMADEX [Concomitant]
     Active Substance: TRAMADOL
     Indication: ANALGESIC THERAPY
     Dosage: RECEIVED WITH MTX
  3. METHOTREXATE [Suspect]
     Active Substance: METHOTREXATE
     Indication: ECTOPIC PREGNANCY
     Dosage: LOW DOSE OF 100 MG
     Route: 042

REACTIONS (11)
  - Oropharyngeal pain [Unknown]
  - Mucosal inflammation [Unknown]
  - Trismus [Unknown]
  - Renal failure [Unknown]
  - Febrile neutropenia [Unknown]
  - Rash maculo-papular [Recovering/Resolving]
  - Pruritus [Unknown]
  - Toxicity to various agents [Unknown]
  - Oral candidiasis [Unknown]
  - Oral pain [Unknown]
  - Pancytopenia [Recovering/Resolving]
